FAERS Safety Report 7444562-9 (Version None)
Quarter: 2011Q2

REPORT INFORMATION
  Report Type: 
  Country: None (occurrence: None)
  Receive Date: 20110426
  Receipt Date: 20110426
  Transmission Date: 20111010
  Serious: No
  Sender: FDA-Public Use
  Company Number: None

PATIENT
  Age: 45 Year
  Sex: Female
  Weight: 54.4316 kg

DRUGS (1)
  1. HALDOL [Suspect]
     Dosage: 2MG DAILY PO
     Route: 048
     Dates: start: 20080601, end: 20080606

REACTIONS (2)
  - HEMIPARESIS [None]
  - ABASIA [None]
